FAERS Safety Report 5169088-7 (Version None)
Quarter: 2006Q4

REPORT INFORMATION
  Report Type: 
  Country: None (occurrence: None)
  Receive Date: 20061211
  Receipt Date: 20061130
  Transmission Date: 20070319
  Serious: Yes (Hospitalization)
  Sender: FDA-Public Use
  Company Number: US-ROCHE-473172

PATIENT
  Age: 48 Year
  Sex: Male
  Weight: 79.4 kg

DRUGS (6)
  1. CAPECITABINE [Suspect]
     Route: 048
     Dates: start: 20061107
  2. OXALIPLATIN [Suspect]
     Route: 042
     Dates: start: 20061107
  3. CETUXIMAB [Suspect]
     Route: 042
     Dates: start: 20061107
  4. 1 SUSPECTED DRUG [Suspect]
     Dosage: REPORTED AS RADIATION THERAPY DOSE: 180 CGY ON MONDAY TO FRIDAY
     Route: 065
     Dates: start: 20061107
  5. ZANTAC [Concomitant]
     Route: 048
  6. NEXIUM [Concomitant]
     Route: 048

REACTIONS (5)
  - HYPOCALCAEMIA [None]
  - LYMPHOPENIA [None]
  - OESOPHAGEAL OBSTRUCTION [None]
  - RADIATION INJURY [None]
  - SWELLING [None]
